FAERS Safety Report 24093464 (Version 1)
Quarter: 2024Q3

REPORT INFORMATION
  Report Type: Spontaneous
  Country: US (occurrence: US)
  Receive Date: 20240715
  Receipt Date: 20240715
  Transmission Date: 20241016
  Serious: No
  Sender: NOVO NORDISK
  Company Number: US-NOVOPROD-1182602

PATIENT
  Sex: Male

DRUGS (1)
  1. SEMAGLUTIDE [Suspect]
     Active Substance: SEMAGLUTIDE
     Indication: Product used for unknown indication
     Dosage: UNK
     Route: 058
     Dates: start: 202310, end: 202402

REACTIONS (4)
  - Abdominal distension [Recovering/Resolving]
  - Abdominal pain upper [Recovering/Resolving]
  - Lack of satiety [Recovering/Resolving]
  - Suspected counterfeit product [Unknown]
